FAERS Safety Report 7720818-7 (Version None)
Quarter: 2011Q3

REPORT INFORMATION
  Report Type: 
  Country: None (occurrence: None)
  Receive Date: 20110831
  Receipt Date: 20110820
  Transmission Date: 20111222
  Serious: Yes (Other)
  Sender: FDA-Public Use
  Company Number: US-JNJFOC-20110612848

PATIENT
  Sex: Female
  Weight: 67.13 kg

DRUGS (2)
  1. DETROL LA [Concomitant]
     Indication: BLADDER DISORDER
     Route: 048
  2. ELMIRON [Suspect]
     Indication: CYSTITIS INTERSTITIAL
     Route: 048
     Dates: start: 20010101

REACTIONS (2)
  - EYE DISORDER [None]
  - CYSTITIS INTERSTITIAL [None]
